FAERS Safety Report 7678332-3 (Version None)
Quarter: 2011Q3

REPORT INFORMATION
  Report Type: 
  Country: None (occurrence: None)
  Receive Date: 20110811
  Receipt Date: 20110808
  Transmission Date: 20111222
  Serious: No
  Sender: FDA-Public Use
  Company Number: US-PFIZER INC-2011181278

PATIENT
  Sex: Female

DRUGS (2)
  1. IMPLANON [Suspect]
     Indication: CONTRACEPTION
     Dosage: 68 MG, 1 DF
     Route: 059
     Dates: start: 20110725
  2. GEODON [Suspect]
     Dosage: UNK
     Dates: start: 20110725

REACTIONS (1)
  - NERVOUSNESS [None]
